FAERS Safety Report 8877198 (Version 1)
Quarter: 2012Q4

REPORT INFORMATION
  Report Type: 
  Country: US (occurrence: US)
  Receive Date: 20121023
  Receipt Date: 20121023
  Transmission Date: 20130627
  Serious: No
  Sender: FDA-Public Use
  Company Number: US-AMGEN-USASP2012017451

PATIENT
  Age: 33 Year
  Sex: Female
  Weight: 68.03 kg

DRUGS (9)
  1. ENBREL [Suspect]
     Indication: PSORIATIC ARTHROPATHY
     Dosage: 50 mg, qwk
     Route: 058
     Dates: start: 20120223, end: 20120830
  2. APRISO [Concomitant]
     Dosage: .375 UNK, qid
     Route: 048
     Dates: start: 20120228
  3. PREDNISONE [Concomitant]
     Dosage: 5 mg, tid
     Route: 048
     Dates: start: 20120201
  4. PRENATAL VITAMINS                  /01549301/ [Concomitant]
     Dosage: UNK UNK, qd
     Route: 048
     Dates: start: 2011
  5. INFLUENZA VACCINE [Concomitant]
  6. FISH OIL [Concomitant]
     Dosage: 1 mg, tid
     Dates: start: 2011
  7. HUMIRA [Concomitant]
     Dosage: 40 mg, q2wk
     Dates: start: 20120906
  8. SERTRALINE [Concomitant]
     Dosage: 50 mg, qd
     Dates: start: 201206
  9. CYANOCOBALAMIN [Concomitant]
     Dosage: 1 ml, qmo
     Dates: start: 20120620

REACTIONS (2)
  - Injection site bruising [Not Recovered/Not Resolved]
  - Injection site pain [Recovered/Resolved]
